FAERS Safety Report 6612325-X (Version None)
Quarter: 2010Q1

REPORT INFORMATION
  Report Type: 
  Country: None (occurrence: None)
  Receive Date: 20100303
  Receipt Date: 20100222
  Transmission Date: 20100710
  Serious: Yes (Other)
  Sender: FDA-Public Use
  Company Number: US-SANOFI-AVENTIS-2010SA010722

PATIENT
  Age: 32 Year
  Sex: Male

DRUGS (2)
  1. LANTUS [Suspect]
     Dosage: DOSE:24 UNIT(S)
     Route: 058
     Dates: start: 20051101
  2. OPTICLICK [Suspect]
     Dates: start: 20060101

REACTIONS (4)
  - COUGH [None]
  - KIDNEY TRANSPLANT REJECTION [None]
  - NASAL CONGESTION [None]
  - RENAL TRANSPLANT [None]
